FAERS Safety Report 23827102 (Version 2)
Quarter: 2024Q3

REPORT INFORMATION
  Report Type: Spontaneous
  Country: US (occurrence: US)
  Receive Date: 20240507
  Receipt Date: 20240807
  Transmission Date: 20241017
  Serious: No
  Sender: GLENMARK
  Company Number: US-GLENMARK PHARMACEUTICALS-2024GMK089007

PATIENT

DRUGS (1)
  1. RYALTRIS [Suspect]
     Active Substance: MOMETASONE FUROATE MONOHYDRATE\OLOPATADINE HYDROCHLORIDE
     Indication: Hypersensitivity
     Dosage: 2 DOSAGE FORM, TWICE DAILY EVERY OTHER DAY (2 SPRAYS IN EACH NOSTRIL TWICE A DAY)
     Route: 045
     Dates: start: 20240208

REACTIONS (7)
  - Product use in unapproved indication [Unknown]
  - Incorrect dose administered by device [Unknown]
  - Product use issue [None]
  - Product communication issue [Unknown]
  - Product preparation issue [Unknown]
  - Device issue [Unknown]
  - Device delivery system issue [Unknown]
